FAERS Safety Report 5824105-3 (Version None)
Quarter: 2008Q3

REPORT INFORMATION
  Report Type: 
  Country: None (occurrence: None)
  Receive Date: 20080728
  Receipt Date: 20080718
  Transmission Date: 20090109
  Serious: Yes (Other)
  Sender: FDA-Public Use
  Company Number: PHEH2007US14782

PATIENT
  Sex: Female

DRUGS (2)
  1. ZOMETA [Suspect]
     Dosage: 3MG, MONTHLY
     Dates: start: 20070123, end: 20070815
  2. REVLIMID [Concomitant]
     Dates: end: 20070801

REACTIONS (12)
  - BONE GRAFT [None]
  - ENDODONTIC PROCEDURE [None]
  - GINGIVAL DISORDER [None]
  - GINGIVAL RECESSION [None]
  - HERPES VIRUS INFECTION [None]
  - LOOSE TOOTH [None]
  - OSTEONECROSIS [None]
  - STOMATITIS [None]
  - TOOTH ABSCESS [None]
  - TOOTH EXTRACTION [None]
  - TOOTH INFECTION [None]
  - TOOTH LOSS [None]
